FAERS Safety Report 24538009 (Version 2)
Quarter: 2025Q2

REPORT INFORMATION
  Report Type: Spontaneous
  Country: US (occurrence: US)
  Receive Date: 20241023
  Receipt Date: 20250507
  Transmission Date: 20250716
  Serious: Yes (Other)
  Sender: SERVIER
  Company Number: US-SERVIER-S24013346

PATIENT

DRUGS (7)
  1. ASPARLAS [Suspect]
     Active Substance: CALASPARGASE PEGOL-MKNL
     Indication: Leukaemia
     Route: 042
     Dates: start: 20240721, end: 20240721
  2. ASPARLAS [Suspect]
     Active Substance: CALASPARGASE PEGOL-MKNL
     Route: 042
     Dates: start: 20240905, end: 20240905
  3. ASPARLAS [Suspect]
     Active Substance: CALASPARGASE PEGOL-MKNL
     Route: 042
     Dates: start: 20241010, end: 20241010
  4. VINCRISTINE [Concomitant]
     Active Substance: VINCRISTINE
     Indication: Leukaemia
     Route: 042
  5. BENADRYL [Concomitant]
     Active Substance: DIPHENHYDRAMINE HYDROCHLORIDE
     Indication: Premedication
     Route: 065
     Dates: start: 20241010, end: 20241010
  6. ZOFRAN [Concomitant]
     Active Substance: ONDANSETRON HYDROCHLORIDE
     Indication: Premedication
     Route: 065
     Dates: start: 20241010, end: 20241010
  7. PEPCID [Concomitant]
     Active Substance: FAMOTIDINE
     Indication: Premedication
     Route: 065
     Dates: start: 20241010, end: 20241010

REACTIONS (1)
  - Anaphylactic reaction [Recovered/Resolved]

NARRATIVE: CASE EVENT DATE: 20241010
